FAERS Safety Report 15625077 (Version 3)
Quarter: 2019Q1

REPORT INFORMATION
  Report Type: Report from Study
  Country: AR (occurrence: AR)
  Receive Date: 20181116
  Receipt Date: 20190205
  Transmission Date: 20190417
  Serious: Yes (Death, Hospitalization)
  Sender: FDA-Public Use
  Company Number: PHHY2018AR154707

PATIENT
  Age: 55 Year
  Sex: Female

DRUGS (2)
  1. SANDOSTATIN LAR DEPOT [Suspect]
     Active Substance: OCTREOTIDE ACETATE
     Indication: NEUROENDOCRINE TUMOUR
     Dosage: UNK, QMO (EVERY 28 DAYS)
     Route: 065
     Dates: start: 20150428
  2. EVEROLIMUS. [Suspect]
     Active Substance: EVEROLIMUS
     Indication: PRODUCT USED FOR UNKNOWN INDICATION
     Dosage: UNK
     Route: 065
     Dates: start: 201712

REACTIONS (10)
  - General physical health deterioration [Fatal]
  - Dehydration [Unknown]
  - Blood potassium decreased [Unknown]
  - Mineral deficiency [Unknown]
  - Gastrointestinal disorder [Unknown]
  - Asthenia [Unknown]
  - Weight bearing difficulty [Unknown]
  - Weight decreased [Unknown]
  - Pollakiuria [Unknown]
  - Acute kidney injury [Recovering/Resolving]

NARRATIVE: CASE EVENT DATE: 201807
